FAERS Safety Report 9636618 (Version 2)
Quarter: 2013Q4

REPORT INFORMATION
  Report Type: Spontaneous
  Country: US (occurrence: US)
  Receive Date: 20131021
  Receipt Date: 20131021
  Transmission Date: 20140711
  Serious: Yes (Hospitalization, Other)
  Sender: FDA-Public Use
  Company Number: US-GILEAD-2013-0083351

PATIENT
  Sex: Male

DRUGS (4)
  1. LETAIRIS [Suspect]
     Indication: PRODUCT USED FOR UNKNOWN INDICATION
     Dosage: 10 MG, QD
     Dates: start: 20080219
  2. LETAIRIS [Suspect]
     Dosage: 10 MG, QID
     Dates: start: 20080119
  3. EPOPROSTENOL SODIUM [Concomitant]
  4. SILDENAFIL CITRATE [Concomitant]

REACTIONS (1)
  - Central venous catheterisation [Unknown]
